FAERS Safety Report 9538702 (Version 3)
Quarter: 2013Q4

REPORT INFORMATION
  Report Type: Spontaneous
  Country: AT (occurrence: AT)
  Receive Date: 20130920
  Receipt Date: 20131017
  Transmission Date: 20140711
  Serious: Yes (Disabling)
  Sender: FDA-Public Use
  Company Number: AT-NOVOPROD-387535

PATIENT
  Age: 62 Year
  Sex: Female
  Weight: 78 kg

DRUGS (10)
  1. VICTOZA [Suspect]
     Indication: TYPE 2 DIABETES MELLITUS
     Dosage: 0.6 MG, QD
     Route: 065
     Dates: start: 20121018, end: 20130910
  2. VICTOZA [Suspect]
     Dosage: UNK
     Route: 065
     Dates: start: 20130923
  3. MICARDISPLUS [Concomitant]
     Dosage: 1-0-0 (MICARDISPLUS TBL 80/12.5 MG)
  4. DILATREND [Concomitant]
     Dosage: 1-0-1.5 (25 MG)
  5. AMARYL [Concomitant]
     Dosage: 1-0-1 (2 MG)
  6. LIPCOR [Concomitant]
     Dosage: 0-0-1 (200MG)
     Dates: start: 20130923
  7. BEZAFIBRAT [Concomitant]
     Dosage: UNK
     Dates: end: 20130923
  8. OMEPRAZOL 1 A PHARMA [Concomitant]
     Dosage: 0-0-1
  9. ALLOPURINOL G.L. [Concomitant]
     Dosage: 0-0-1 (300 MG)
  10. SIMVASTATIN BLUEFISH [Concomitant]
     Dosage: 0-0-1 (20 MG)

REACTIONS (3)
  - Papilloedema [Not Recovered/Not Resolved]
  - Blindness [Not Recovered/Not Resolved]
  - Visual impairment [Not Recovered/Not Resolved]
